FAERS Safety Report 7647849-X (Version None)
Quarter: 2011Q3

REPORT INFORMATION
  Report Type: 
  Country: None (occurrence: None)
  Receive Date: 20110801
  Receipt Date: 20110721
  Transmission Date: 20111222
  Serious: Yes (Other)
  Sender: FDA-Public Use
  Company Number: CA-PFIZER INC-2011173382

PATIENT
  Age: 55 Year
  Sex: Male

DRUGS (2)
  1. MORPHINE SULFATE [Suspect]
     Indication: PAIN
  2. OXYCONTIN [Suspect]
     Indication: PAIN
     Dosage: UNK

REACTIONS (2)
  - DRUG INEFFECTIVE [None]
  - HYPERAESTHESIA [None]
